FAERS Safety Report 16903918 (Version 1)
Quarter: 2019Q4

REPORT INFORMATION
  Report Type: Report from Study
  Country: None (occurrence: IL)
  Receive Date: 20191010
  Receipt Date: 20191010
  Transmission Date: 20200122
  Serious: Yes (Hospitalization)
  Sender: FDA-Public Use
  Company Number: IL-ABBVIE-19K-082-2933574-00

PATIENT
  Age: 58 Year
  Sex: Male

DRUGS (2)
  1. DUODOPA [Suspect]
     Active Substance: CARBIDOPA\LEVODOPA
     Dosage: MORNING 11.3 ML, CONTINUOUS RATE 3.8 ML/HOUR, ED 3.5 ML
     Route: 050
  2. DUODOPA [Suspect]
     Active Substance: CARBIDOPA\LEVODOPA
     Indication: PARKINSON^S DISEASE
     Dosage: CMD- 13 ML, CR- 3 ML/ HOUR, CURRENT ED- 1 ML
     Route: 050

REACTIONS (11)
  - Decreased appetite [Unknown]
  - Debridement [Unknown]
  - Necrosis [Unknown]
  - Pyrexia [Recovered/Resolved]
  - Erythema [Unknown]
  - Chills [Unknown]
  - Stoma site abscess [Recovering/Resolving]
  - On and off phenomenon [Unknown]
  - Abdominal discomfort [Not Recovered/Not Resolved]
  - Abdominal pain [Not Recovered/Not Resolved]
  - Abdominal distension [Unknown]
